FAERS Safety Report 26217669 (Version 1)
Quarter: 2025Q4

REPORT INFORMATION
  Report Type: Spontaneous
  Country: IN (occurrence: IN)
  Receive Date: 20251231
  Receipt Date: 20251231
  Transmission Date: 20260118
  Serious: Yes (Hospitalization, Disabling, Other)
  Sender: DR REDDYS
  Company Number: None

PATIENT
  Age: 77 Year
  Sex: Female

DRUGS (2)
  1. TICAGRELOR [Suspect]
     Active Substance: TICAGRELOR
     Indication: Antiplatelet therapy
  2. ASPIRIN [Suspect]
     Active Substance: ASPIRIN
     Indication: Antiplatelet therapy

REACTIONS (3)
  - Subdural haematoma [Recovered/Resolved]
  - Spinal subdural haematoma [Recovered/Resolved]
  - Paraparesis [Recovered/Resolved]
